FAERS Safety Report 25268308 (Version 1)
Quarter: 2025Q2

REPORT INFORMATION
  Report Type: Spontaneous
  Country: US (occurrence: None)
  Receive Date: 20250503
  Receipt Date: 20250503
  Transmission Date: 20250716
  Serious: No
  Sender: FDA-CTU
  Company Number: None

PATIENT
  Age: 76 Year
  Sex: Female
  Weight: 62.1 kg

DRUGS (7)
  1. CALCIPOTRIENE\FLUOROURACIL [Suspect]
     Active Substance: CALCIPOTRIENE\FLUOROURACIL
     Indication: Precancerous skin lesion
     Dosage: 1 PIMP TWICE A DAY TOPICAL
     Route: 061
     Dates: start: 20250420, end: 20250425
  2. VITAMIN C [Concomitant]
     Active Substance: ASCORBIC ACID
  3. d [Concomitant]
  4. SELENIUM [Concomitant]
     Active Substance: SELENIUM
  5. ZINC [Concomitant]
     Active Substance: ZINC
  6. FISH OIL [Concomitant]
     Active Substance: FISH OIL
  7. JWH-018 [Concomitant]
     Active Substance: JWH-018

REACTIONS (4)
  - Dysphonia [None]
  - Cough [None]
  - Choking [None]
  - Sinus operation [None]

NARRATIVE: CASE EVENT DATE: 20250425
